FAERS Safety Report 5217764-X (Version None)
Quarter: 2006Q4

REPORT INFORMATION
  Report Type: 
  Country: None (occurrence: None)
  Receive Date: 20061130
  Receipt Date: 20060614
  Transmission Date: 20070319
  Serious: Yes (Hospitalization)
  Sender: FDA-Public Use
  Company Number: US200606003473

PATIENT
  Age: 44 Year
  Sex: Female
  Weight: 98 kg

DRUGS (8)
  1. ZYPREXA [Suspect]
     Dosage: SEE IMAGE
     Dates: start: 20021122
  2. ZYPREXA [Suspect]
     Dosage: SEE IMAGE
     Dates: start: 20030521
  3. ASPIRIN [Concomitant]
  4. CELEXA [Concomitant]
  5. TRAZODONE HCL [Concomitant]
  6. TOPROL-XL [Concomitant]
  7. LASIX [Concomitant]
  8. PROLIXIN [Concomitant]

REACTIONS (3)
  - DEHYDRATION [None]
  - DIABETES MELLITUS [None]
  - HYPONATRAEMIA [None]
